FAERS Safety Report 13821119 (Version 4)
Quarter: 2017Q3

REPORT INFORMATION
  Report Type: Report from Study
  Country: None (occurrence: TR)
  Receive Date: 20170801
  Receipt Date: 20170818
  Transmission Date: 20171127
  Serious: Yes (Death, Hospitalization, Other)
  Sender: FDA-Public Use
  Company Number: TR-ABBVIE-17P-161-2055892-00

PATIENT
  Age: 77 Year
  Sex: Female
  Weight: 54 kg

DRUGS (1)
  1. DUODOPA [Suspect]
     Active Substance: CARBIDOPA\LEVODOPA
     Indication: PARKINSON^S DISEASE
     Dosage: MORNING DOSE: 8.00 ML??CONTINUOUS DOSE. 3.70 ML??EXTRA DOSE: 1.00 ML
     Route: 050
     Dates: start: 20140513

REACTIONS (4)
  - Lung infection [Unknown]
  - Sepsis [Unknown]
  - Acute kidney injury [Not Recovered/Not Resolved]
  - Death [Fatal]

NARRATIVE: CASE EVENT DATE: 20170801
